FAERS Safety Report 22075145 (Version 1)
Quarter: 2023Q1

REPORT INFORMATION
  Report Type: Spontaneous
  Country: US (occurrence: None)
  Receive Date: 20230308
  Receipt Date: 20230308
  Transmission Date: 20230418
  Serious: Yes (Other)
  Sender: FDA-Public Use
  Company Number: None

PATIENT
  Age: 69 Year
  Sex: Female

DRUGS (2)
  1. AMBRISENTAN [Suspect]
     Active Substance: AMBRISENTAN
     Indication: Pulmonary arterial hypertension
     Dates: start: 20230206
  2. TADALAFIL [Concomitant]
     Active Substance: TADALAFIL
     Dates: start: 20230206

REACTIONS (1)
  - Arthralgia [None]

NARRATIVE: CASE EVENT DATE: 20230308
